FAERS Safety Report 5333238-X (Version None)
Quarter: 2007Q2

REPORT INFORMATION
  Report Type: 
  Country: None (occurrence: None)
  Receive Date: 20070524
  Receipt Date: 20070511
  Transmission Date: 20071010
  Serious: Yes (Hospitalization, Other)
  Sender: FDA-Public Use
  Company Number: US-AMGEN-KDL024910

PATIENT
  Sex: Male
  Weight: 27.4 kg

DRUGS (17)
  1. PROCRIT [Suspect]
     Indication: DIALYSIS
     Route: 058
     Dates: start: 20010601, end: 20021101
  2. NEPHRO-CAPS [Concomitant]
     Route: 048
     Dates: start: 20020801, end: 20020811
  3. PROGRAF [Concomitant]
     Dates: start: 20020811
  4. NIFEREX [Concomitant]
     Route: 048
     Dates: end: 20020801
  5. TUMS [Concomitant]
     Route: 048
     Dates: end: 20020101
  6. ZANTAC [Concomitant]
     Dates: start: 20020811, end: 20021101
  7. NYSTATIN [Concomitant]
     Dates: start: 20020811, end: 20021001
  8. NORVASC [Concomitant]
     Dates: start: 20020811
  9. INDERAL [Concomitant]
     Dates: start: 20020811, end: 20030101
  10. FERROUS SULFATE [Concomitant]
     Dates: end: 20021101
  11. PREDNISONE TAB [Concomitant]
     Route: 048
     Dates: start: 20020811
  12. LASIX [Concomitant]
     Dates: start: 20021001
  13. CELLCEPT [Concomitant]
     Dates: start: 20020811, end: 20030116
  14. ATGAM [Concomitant]
     Dates: start: 20020811, end: 20020814
  15. CO-TRIMOXAZOLE [Concomitant]
     Dates: start: 20020811
  16. ROCALTROL [Concomitant]
     Dates: end: 20020811
  17. VALACYCLOVIR HYDROCHLORIDE [Concomitant]
     Dates: start: 20020811

REACTIONS (6)
  - ANTI-ERYTHROPOIETIN ANTIBODY POSITIVE [None]
  - APLASIA PURE RED CELL [None]
  - BACTERAEMIA [None]
  - LIVER TRANSPLANT [None]
  - RENAL TRANSPLANT [None]
  - THERAPEUTIC RESPONSE DECREASED [None]
